FAERS Safety Report 19056319 (Version 1)
Quarter: 2021Q1

REPORT INFORMATION
  Report Type: Spontaneous
  Country: US (occurrence: US)
  Receive Date: 20210324
  Receipt Date: 20210324
  Transmission Date: 20210420
  Serious: Yes (Hospitalization)
  Sender: FDA-Public Use
  Company Number: None

PATIENT
  Sex: Female

DRUGS (7)
  1. AMOXICILLIN. [Concomitant]
     Active Substance: AMOXICILLIN
  2. DICYCLOMINE [Concomitant]
     Active Substance: DICYCLOMINE HYDROCHLORIDE
  3. LEVAQUIN [Concomitant]
     Active Substance: LEVOFLOXACIN
  4. ACYCLOVIR. [Concomitant]
     Active Substance: ACYCLOVIR
  5. HYDROXYZ HCL [Concomitant]
     Active Substance: HYDROXYZINE HYDROCHLORIDE
  6. ZARXIO [Suspect]
     Active Substance: FILGRASTIM-SNDZ
     Route: 058
     Dates: start: 20210316
  7. HYDROCHLOROT [Concomitant]
     Active Substance: HYDROCHLOROTHIAZIDE

REACTIONS (1)
  - Condition aggravated [None]
